FAERS Safety Report 16388887 (Version 4)
Quarter: 2020Q2

REPORT INFORMATION
  Report Type: Spontaneous
  Country: PL (occurrence: PL)
  Receive Date: 20190604
  Receipt Date: 20200421
  Transmission Date: 20200713
  Serious: Yes (Life-Threatening, Hospitalization, Other)
  Sender: FDA-Public Use
  Company Number: PHHY2019PL124824

PATIENT
  Age: 13 Year
  Sex: Female
  Weight: 58 kg

DRUGS (8)
  1. OESCLIM [Suspect]
     Active Substance: ESTRADIOL
     Dosage: 25 UG, QD
     Route: 065
  2. GENOTROPIN [Suspect]
     Active Substance: SOMATROPIN
     Indication: BLOOD GROWTH HORMONE
     Dosage: 0.33 TO 0.047 MG/KG DAILY
     Route: 065
     Dates: start: 200808
  3. LEVOTHYROXINE. [Concomitant]
     Active Substance: LEVOTHYROXINE
     Indication: AUTOIMMUNE THYROIDITIS
     Dosage: MODIFIED DOSE
     Route: 065
  4. PROGESTERONE. [Concomitant]
     Active Substance: PROGESTERONE
     Indication: HORMONE REPLACEMENT THERAPY
     Dosage: UNK
     Route: 065
  5. LEVOTHYROXINE. [Concomitant]
     Active Substance: LEVOTHYROXINE
     Indication: HYPOTHYROIDISM
     Dosage: 75 UG, QD
     Route: 065
  6. OMNITROPE [Suspect]
     Active Substance: SOMATROPIN
     Indication: GROWTH DISORDER
     Dosage: 0.33 TO 0.047 MG/KG QD
     Route: 065
  7. OESCLIM [Suspect]
     Active Substance: ESTRADIOL
     Indication: OESTROGEN THERAPY
     Dosage: 6.25 UG, QD
     Route: 065
  8. OESCLIM [Suspect]
     Active Substance: ESTRADIOL
     Dosage: CONTINUOUSLY INCREASED DURING A YEARUNK
     Route: 065

REACTIONS (3)
  - Lymphoplasia [Recovering/Resolving]
  - Goitre [Recovering/Resolving]
  - Papillary thyroid cancer [Recovered/Resolved]

NARRATIVE: CASE EVENT DATE: 201210
